FAERS Safety Report 6630939-8 (Version None)
Quarter: 2010Q1

REPORT INFORMATION
  Report Type: 
  Country: None (occurrence: None)
  Receive Date: 20100309
  Receipt Date: 20100226
  Transmission Date: 20100710
  Serious: Yes (Hospitalization)
  Sender: FDA-Public Use
  Company Number: CRC-10-039

PATIENT
  Sex: Male

DRUGS (1)
  1. EXTENDED PHENYTOIN SODIUM [Suspect]
     Dosage: 2 CAPS @AM; 3 CAPS @PM
     Route: 048

REACTIONS (2)
  - PRODUCT QUALITY ISSUE [None]
  - THERAPEUTIC AGENT TOXICITY [None]
